FAERS Safety Report 22062341 (Version 1)
Quarter: 2023Q1

REPORT INFORMATION
  Report Type: Spontaneous
  Country: FR (occurrence: FR)
  Receive Date: 20230305
  Receipt Date: 20230305
  Transmission Date: 20230418
  Serious: Yes (Hospitalization, Other)
  Sender: FDA-Public Use
  Company Number: FR-AFSSAPS-CF2023000114

PATIENT
  Age: 51 Year
  Sex: Male
  Weight: 58 kg

DRUGS (5)
  1. CARBOPLATIN [Suspect]
     Active Substance: CARBOPLATIN
     Indication: Adenocarcinoma
     Dosage: 609 MILLIGRAM,ONCE A DAY (CURE DE 609 MG (J1))
     Route: 042
     Dates: start: 20230203, end: 20230203
  2. REMIFENTANIL [Suspect]
     Active Substance: REMIFENTANIL
     Indication: Sedation
     Dosage: 1 DOSAGE FORM
     Route: 042
     Dates: start: 20230130
  3. SEVOFLURANE [Suspect]
     Active Substance: SEVOFLURANE
     Indication: Endotracheal intubation
     Dosage: 1 DOSAGE FORM
     Dates: start: 20230130, end: 20230208
  4. PROPOFOL [Suspect]
     Active Substance: PROPOFOL
     Indication: Sedation
     Dosage: 1 DOSAGE FORM
     Route: 042
     Dates: start: 20230204
  5. ETOPOSIDE [Suspect]
     Active Substance: ETOPOSIDE
     Indication: Adenocarcinoma
     Dosage: 161 MILLIGRAM, ONCE A DAY (J1, J2 + J3)
     Route: 042
     Dates: start: 20230203, end: 20230205

REACTIONS (2)
  - Rhabdomyolysis [Not Recovered/Not Resolved]
  - Blood creatine phosphokinase increased [Not Recovered/Not Resolved]

NARRATIVE: CASE EVENT DATE: 20230205
